FAERS Safety Report 7198882-6 (Version None)
Quarter: 2010Q4

REPORT INFORMATION
  Report Type: 
  Country: None (occurrence: None)
  Receive Date: 20101227
  Receipt Date: 20101214
  Transmission Date: 20110411
  Serious: Yes (Other)
  Sender: FDA-Public Use
  Company Number: CA-GENENTECH-307166

PATIENT
  Sex: Female

DRUGS (1)
  1. XOLAIR [Suspect]
     Indication: ASTHMA
     Dosage: 300 MG, Q2W
     Route: 058
     Dates: start: 20090330

REACTIONS (5)
  - ATELECTASIS [None]
  - BRONCHITIS [None]
  - COUGH [None]
  - DYSPHONIA [None]
  - NASOPHARYNGITIS [None]
